FAERS Safety Report 8181625 (Version 3)
Quarter: 2014Q3

REPORT INFORMATION
  Report Type: Spontaneous
  Country: US (occurrence: US)
  Receive Date: 20111014
  Receipt Date: 20140707
  Transmission Date: 20150326
  Serious: Yes (Life-Threatening, Hospitalization)
  Sender: FDA-Public Use
  Company Number: US-BAYER-2011-098933

PATIENT
  Age: 42 Year
  Sex: Female
  Weight: 95.5 kg

DRUGS (3)
  1. YAZ [Suspect]
     Active Substance: DROSPIRENONE\ETHINYL ESTRADIOL
     Indication: DYSMENORRHOEA
     Dosage: UNK
     Route: 048
     Dates: start: 2008, end: 201002
  2. SIMVASTATIN. [Concomitant]
     Active Substance: SIMVASTATIN
  3. YAZ [Suspect]
     Active Substance: DROSPIRENONE\ETHINYL ESTRADIOL
     Indication: CONTRACEPTION
     Dosage: UNK
     Route: 048
     Dates: start: 200802, end: 201002

REACTIONS (13)
  - Pain [None]
  - Anhedonia [None]
  - Injury [None]
  - Fatigue [None]
  - Asthenia [None]
  - General physical health deterioration [None]
  - Anxiety [None]
  - Syncope [None]
  - Acute myocardial infarction [None]
  - Pain in extremity [None]
  - Dyspnoea [None]
  - Chest pain [None]
  - Neck pain [None]

NARRATIVE: CASE EVENT DATE: 20100219
